FAERS Safety Report 21154349 (Version 3)
Quarter: 2022Q3

REPORT INFORMATION
  Report Type: Spontaneous
  Country: CA (occurrence: CA)
  Receive Date: 20220801
  Receipt Date: 20220810
  Transmission Date: 20221026
  Serious: Yes (Other)
  Sender: FDA-Public Use
  Company Number: CA-BAYER-2022A105028

PATIENT

DRUGS (1)
  1. EYLEA [Suspect]
     Active Substance: AFLIBERCEPT
     Indication: Product used for unknown indication
     Dosage: UNK, SOLUTION FOR INJECTION

REACTIONS (4)
  - Blindness [Recovered/Resolved]
  - Intraocular pressure increased [Recovered/Resolved]
  - Device difficult to use [Unknown]
  - Device use issue [Unknown]
